FAERS Safety Report 7656608-3 (Version None)
Quarter: 2011Q3

REPORT INFORMATION
  Report Type: 
  Country: None (occurrence: None)
  Receive Date: 20110804
  Receipt Date: 20110722
  Transmission Date: 20111222
  Serious: Yes (Hospitalization)
  Sender: FDA-Public Use
  Company Number: US-SANOFI-AVENTIS-2011SA048418

PATIENT
  Age: 77 Year
  Sex: Male
  Weight: 109 kg

DRUGS (9)
  1. CARVEDIOL [Concomitant]
     Route: 065
  2. LISINOPRIL [Concomitant]
     Route: 065
  3. FUROSEMIDE [Concomitant]
     Route: 065
  4. ASPIRIN [Concomitant]
     Route: 065
  5. NSAID'S [Concomitant]
     Route: 065
  6. DRONEDARONE HCL [Suspect]
     Indication: ATRIAL FIBRILLATION
     Route: 048
     Dates: start: 20101014, end: 20101123
  7. SIMVASTATIN [Concomitant]
     Route: 065
  8. DIGOXIN [Concomitant]
     Route: 065
  9. CLOPIDOGREL [Concomitant]
     Route: 065

REACTIONS (1)
  - CARDIAC OPERATION [None]
